FAERS Safety Report 12907234 (Version 1)
Quarter: 2016Q4

REPORT INFORMATION
  Report Type: Spontaneous
  Country: US (occurrence: US)
  Receive Date: 20161103
  Receipt Date: 20161103
  Transmission Date: 20170207
  Serious: Yes (Other)
  Sender: FDA-Public Use
  Company Number: US-JNJFOC-20161025166

PATIENT
  Age: 55 Year
  Sex: Male
  Weight: 80.74 kg

DRUGS (9)
  1. KEPPRA [Concomitant]
     Active Substance: LEVETIRACETAM
     Indication: EPILEPSY
     Dosage: 750 MG IN AM AND 1250 AT NIGHT
     Dates: start: 2011
  2. DILANTIN [Concomitant]
     Active Substance: PHENYTOIN
     Indication: EPILEPSY
  3. WARFARIN [Concomitant]
     Active Substance: WARFARIN
     Indication: THROMBOSIS PROPHYLAXIS
     Dosage: DOSE VARIES
  4. PREVACID [Concomitant]
     Active Substance: LANSOPRAZOLE
     Indication: GASTROOESOPHAGEAL REFLUX DISEASE
     Dates: start: 2003
  5. DARZALEX [Suspect]
     Active Substance: DARATUMUMAB
     Indication: PLASMA CELL MYELOMA
     Route: 042
     Dates: start: 2016
  6. GABAPENTIN. [Concomitant]
     Active Substance: GABAPENTIN
     Indication: NEUROPATHY PERIPHERAL
     Dates: start: 2014
  7. DARZALEX [Suspect]
     Active Substance: DARATUMUMAB
     Indication: PLASMA CELL MYELOMA
     Dosage: FOR 8 WEEKS IN A ROW
     Route: 042
     Dates: start: 2016, end: 2016
  8. DARZALEX [Suspect]
     Active Substance: DARATUMUMAB
     Indication: PLASMA CELL MYELOMA
     Route: 042
     Dates: start: 2016
  9. WARFARIN [Concomitant]
     Active Substance: WARFARIN
     Indication: PLASMA CELL MYELOMA
     Dosage: DOSE VARIES

REACTIONS (2)
  - Blood creatinine increased [Unknown]
  - Blood immunoglobulin G decreased [Unknown]

NARRATIVE: CASE EVENT DATE: 201610
